FAERS Safety Report 14882256 (Version 1)
Quarter: 2018Q2

REPORT INFORMATION
  Report Type: Spontaneous
  Country: US (occurrence: US)
  Receive Date: 20180511
  Receipt Date: 20180511
  Transmission Date: 20180711
  Serious: Yes (Hospitalization)
  Sender: FDA-Public Use
  Company Number: US-ALLERGAN-1824523US

PATIENT
  Age: 61 Year
  Sex: Female
  Weight: 88.9 kg

DRUGS (8)
  1. SODIUM BIPHOSPHATE [Concomitant]
     Indication: ILEUS
     Dosage: UNK
     Route: 065
     Dates: start: 20180417, end: 20180417
  2. LORAZEPAM. [Concomitant]
     Active Substance: LORAZEPAM
     Indication: ANXIETY
     Dosage: 0.25 MG, QD
     Route: 042
     Dates: start: 20180417
  3. HYDROMORPHONE [Concomitant]
     Active Substance: HYDROMORPHONE
     Indication: PAIN
     Dosage: 0.4 MG, Q2HR
     Route: 042
     Dates: start: 20180412
  4. MACROGOL [Concomitant]
     Active Substance: POLYETHYLENE GLYCOLS
     Indication: CONSTIPATION
     Dosage: UNK UNK, BID
     Route: 048
     Dates: start: 20180413
  5. METOCLOPRAMIDE HCL [Concomitant]
     Active Substance: METOCLOPRAMIDE HYDROCHLORIDE
     Indication: NAUSEA
     Dosage: UNK UNK, TID
     Route: 042
     Dates: start: 20180420
  6. SENNA ALEXANDRINA [Concomitant]
     Active Substance: SENNA LEAF
     Indication: CONSTIPATION
     Dosage: UNK UNK, BID
     Route: 048
     Dates: start: 20180412
  7. BISACODYL. [Concomitant]
     Active Substance: BISACODYL
     Indication: ILEUS
     Dosage: 10 MG, QD
     Route: 054
     Dates: start: 20180417
  8. NORCO [Suspect]
     Active Substance: ACETAMINOPHEN\HYDROCODONE BITARTRATE
     Indication: PAIN
     Dosage: 2 DF, QID
     Route: 048
     Dates: start: 20180413, end: 20180415

REACTIONS (1)
  - Postoperative ileus [Recovered/Resolved]

NARRATIVE: CASE EVENT DATE: 20180417
